FAERS Safety Report 4451574-6 (Version None)
Quarter: 2004Q3

REPORT INFORMATION
  Report Type: 
  Country: None (occurrence: None)
  Receive Date: 20040915
  Receipt Date: 20040902
  Transmission Date: 20050211
  Serious: Yes (Hospitalization)
  Sender: FDA-Public Use
  Company Number: 04-NIP00109

PATIENT
  Age: 66 Year
  Sex: Male
  Weight: 94.6 kg

DRUGS (1)
  1. NIPENT [Suspect]
     Indication: PROPHYLAXIS AGAINST TRANSPLANT REJECTION
     Dosage: 2.91 MG (X 4 DOSES), INTRAVENUOS
     Route: 042
     Dates: start: 20040806, end: 20040820

REACTIONS (6)
  - BLOOD STEM CELL TRANSPLANT FAILURE [None]
  - HAEMODIALYSIS [None]
  - HEPATOMEGALY [None]
  - RENAL FAILURE ACUTE [None]
  - SPLENOMEGALY [None]
  - WHITE BLOOD CELL COUNT DECREASED [None]
